FAERS Safety Report 18709159 (Version 4)
Quarter: 2021Q3

REPORT INFORMATION
  Report Type: Report from Study
  Country: CA (occurrence: CA)
  Receive Date: 20210106
  Receipt Date: 20210914
  Transmission Date: 20211014
  Serious: Yes (Other)
  Sender: FDA-Public Use
  Company Number: CA-TAKEDA-2017TUS005638

PATIENT
  Age: 55 Year
  Sex: Female

DRUGS (6)
  1. CODEINE [Concomitant]
     Active Substance: CODEINE
     Indication: CONSTIPATION
     Dosage: UNK
     Dates: start: 1986
  2. VITAMIN B NOS [Concomitant]
     Active Substance: VITAMIN B
     Dosage: 1 MILLIGRAM, MONTHLY
     Dates: start: 201602
  3. ESCITALOPRAM [Concomitant]
     Active Substance: ESCITALOPRAM OXALATE
     Indication: DEPRESSION
     Dosage: 10 MILLIGRAM, QD
     Dates: start: 201604
  4. VEDOLIZUMAB [Suspect]
     Active Substance: VEDOLIZUMAB
     Indication: CROHN^S DISEASE
     Dosage: 300 MILLIGRAM
     Route: 042
     Dates: start: 20160714
  5. VEDOLIZUMAB [Suspect]
     Active Substance: VEDOLIZUMAB
     Dosage: 300 MILLIGRAM, Q4WEEKS
     Route: 042
     Dates: start: 20210318
  6. COVERSYL                           /00790702/ [Concomitant]
     Active Substance: PERINDOPRIL
     Indication: HYPERTENSION
     Dosage: 8 MILLIGRAM, QD
     Dates: start: 201602

REACTIONS (4)
  - Drug ineffective [Unknown]
  - Anal abscess [Unknown]
  - Off label use [Unknown]
  - Product dose omission issue [Unknown]

NARRATIVE: CASE EVENT DATE: 20210318
